FAERS Safety Report 17680196 (Version 4)
Quarter: 2020Q2

REPORT INFORMATION
  Report Type: Report from Study
  Country: JP (occurrence: JP)
  Receive Date: 20200417
  Receipt Date: 20200626
  Transmission Date: 20200714
  Serious: Yes (Hospitalization)
  Sender: FDA-Public Use
  Company Number: JP-EISAI MEDICAL RESEARCH-EC-2020-073346

PATIENT
  Age: 75 Year
  Sex: Male
  Weight: 56 kg

DRUGS (30)
  1. VEMLIDY [Concomitant]
     Active Substance: TENOFOVIR ALAFENAMIDE FUMARATE
     Route: 048
  2. REMITCH [Concomitant]
     Active Substance: NALFURAFINE HYDROCHLORIDE
     Route: 048
  3. LENVATINIB [Suspect]
     Active Substance: LENVATINIB
     Indication: HEPATOCELLULAR CARCINOMA
     Route: 048
     Dates: start: 20190205, end: 20190218
  4. LIPIODOL ULTRAFLUIDE [Concomitant]
     Route: 065
  5. REMINYL [Concomitant]
     Active Substance: GALANTAMINE
     Route: 048
  6. ALDACTONE A [Concomitant]
     Active Substance: SPIRONOLACTONE
     Route: 048
  7. EPIRUBICIN HYDROCHLORIDE. [Concomitant]
     Active Substance: EPIRUBICIN HYDROCHLORIDE
     Route: 065
  8. SOSEGON [Concomitant]
     Active Substance: PENTAZOCINE
     Route: 065
  9. ACTOS [Concomitant]
     Active Substance: PIOGLITAZONE HYDROCHLORIDE
     Route: 048
  10. NEXIUM [Concomitant]
     Active Substance: ESOMEPRAZOLE MAGNESIUM
     Route: 048
  11. THYRADIN [Concomitant]
     Active Substance: LEVOTHYROXINE
     Route: 048
  12. CRAVIT [Concomitant]
     Active Substance: LEVOFLOXACIN
     Route: 048
  13. DOGMATYL [Concomitant]
     Active Substance: SULPIRIDE
     Route: 048
  14. UNIPHYL [Concomitant]
     Active Substance: THEOPHYLLINE ANHYDROUS
     Route: 048
  15. OMEGACIN [Concomitant]
     Active Substance: BIAPENEM
     Route: 065
  16. HERBESSER [Concomitant]
     Active Substance: DILTIAZEM HYDROCHLORIDE
     Route: 048
  17. RELVAR [Concomitant]
     Active Substance: FLUTICASONE FUROATE\VILANTEROL TRIFENATATE
     Route: 055
  18. LENVATINIB [Suspect]
     Active Substance: LENVATINIB
     Route: 048
     Dates: start: 20190226
  19. SOLU-CORTEF [Concomitant]
     Active Substance: HYDROCORTISONE SODIUM SUCCINATE
     Route: 065
  20. LUSEFI [Concomitant]
     Active Substance: LUSEOGLIFLOZIN
     Route: 048
  21. GELPART [Concomitant]
     Active Substance: GELATIN
     Route: 065
  22. SEISHOKU [Concomitant]
     Active Substance: SODIUM CHLORIDE
     Route: 065
  23. GRANISETRON HYDROCHLORIDE. [Concomitant]
     Active Substance: GRANISETRON HYDROCHLORIDE
     Route: 065
  24. ATARAX [Concomitant]
     Active Substance: HYDROXYZINE HYDROCHLORIDE
     Route: 065
  25. SOLDEM 1 [Concomitant]
     Active Substance: DEXTROSE\SODIUM CHLORIDE\SODIUM LACTATE
     Route: 065
  26. HEPARIN [Concomitant]
     Active Substance: HEPARIN SODIUM
     Route: 065
  27. IOPAMIRON [Concomitant]
     Active Substance: IOPAMIDOL
     Route: 065
  28. TALION [Concomitant]
     Route: 048
  29. MAGMITT [Concomitant]
     Active Substance: MAGNESIUM OXIDE
     Route: 048
  30. HIRUDOID [Concomitant]
     Active Substance: GLYCOSAMINOGLYCANS
     Route: 062

REACTIONS (2)
  - Cholangitis acute [Recovered/Resolved]
  - Decreased appetite [Not Recovered/Not Resolved]

NARRATIVE: CASE EVENT DATE: 20200414
